FAERS Safety Report 20647278 (Version 4)
Quarter: 2022Q2

REPORT INFORMATION
  Report Type: Spontaneous
  Country: ME (occurrence: ME)
  Receive Date: 20220329
  Receipt Date: 20220517
  Transmission Date: 20220721
  Serious: Yes (Hospitalization, Other)
  Sender: FDA-Public Use
  Company Number: ME-NOVARTISPH-NVSC2022ME066415

PATIENT
  Age: 48 Year
  Sex: Female

DRUGS (2)
  1. TAFINLAR [Suspect]
     Active Substance: DABRAFENIB MESYLATE
     Indication: Metastatic malignant melanoma
     Dosage: 75 MG, Q8H (2X2)
     Route: 065
     Dates: start: 202004, end: 20220120
  2. MEKINIST [Suspect]
     Active Substance: TRAMETINIB DIMETHYL SULFOXIDE
     Indication: Metastatic malignant melanoma
     Dosage: 2 MG, 1X1
     Route: 065
     Dates: start: 202004, end: 20220120

REACTIONS (17)
  - Rash macular [Recovered/Resolved]
  - Pruritus [Unknown]
  - Malaise [Unknown]
  - General physical health deterioration [Recovered/Resolved]
  - Transaminases increased [Recovered/Resolved]
  - Leukopenia [Unknown]
  - Neutropenia [Unknown]
  - Pyrexia [Unknown]
  - Face oedema [Recovered/Resolved]
  - Tumour pseudoprogression [Unknown]
  - Metastases to lung [Recovered/Resolved]
  - Lymphadenopathy [Recovered/Resolved]
  - Spinal pain [Recovered/Resolved]
  - Groin pain [Recovered/Resolved]
  - Thrombocytosis [Unknown]
  - Malaise [Recovered/Resolved]
  - Fatigue [Recovered/Resolved]

NARRATIVE: CASE EVENT DATE: 20211208
